FAERS Safety Report 5906923-6 (Version None)
Quarter: 2008Q4

REPORT INFORMATION
  Report Type: 
  Country: None (occurrence: None)
  Receive Date: 20081003
  Receipt Date: 20080915
  Transmission Date: 20090506
  Serious: No
  Sender: FDA-Public Use
  Company Number: US-BAYER-200830546NA

PATIENT
  Age: 57 Year
  Sex: Female

DRUGS (1)
  1. CLIMARA [Suspect]
     Indication: HOT FLUSH
     Route: 062
     Dates: start: 20030701, end: 20080728

REACTIONS (3)
  - HEADACHE [None]
  - HOT FLUSH [None]
  - PRODUCT QUALITY ISSUE [None]
